FAERS Safety Report 6822680-3 (Version None)
Quarter: 2010Q3

REPORT INFORMATION
  Report Type: 
  Country: None (occurrence: None)
  Receive Date: 20100708
  Receipt Date: 20100626
  Transmission Date: 20110219
  Serious: Yes (Other)
  Sender: FDA-Public Use
  Company Number: US-PFIZER INC-2010080676

PATIENT
  Sex: Male
  Weight: 87.1 kg

DRUGS (1)
  1. CHANTIX [Suspect]
     Indication: SMOKING CESSATION THERAPY
     Dosage: 0.5 MG, 1X/DAY
     Route: 048
     Dates: start: 20100601

REACTIONS (4)
  - AGITATION [None]
  - ANGER [None]
  - DEPRESSION [None]
  - IRRITABILITY [None]
